FAERS Safety Report 7115866-4 (Version None)
Quarter: 2010Q4

REPORT INFORMATION
  Report Type: 
  Country: None (occurrence: None)
  Receive Date: 20101122
  Receipt Date: 20101108
  Transmission Date: 20110411
  Serious: Yes (Other)
  Sender: FDA-Public Use
  Company Number: US-ELI_LILLY_AND_COMPANY-US201010003929

PATIENT
  Sex: Male

DRUGS (6)
  1. FORTEO [Suspect]
     Indication: OSTEOPOROSIS
     Dosage: 20 UG, DAILY (1/D)
     Route: 065
  2. PREDNISONE [Concomitant]
     Dosage: 2 MG, DAILY (1/D)
  3. PROTONIX [Concomitant]
  4. DIGOXIN [Concomitant]
     Dosage: 250 UG, UNK
  5. COUMADIN [Concomitant]
     Dosage: 5 MG, UNK
  6. COUMADIN [Concomitant]
     Dosage: 2.5 MG, UNK

REACTIONS (1)
  - LUNG ADENOCARCINOMA [None]
